FAERS Safety Report 9328456 (Version 1)
Quarter: 2013Q2

REPORT INFORMATION
  Report Type: Spontaneous
  Country: US (occurrence: US)
  Receive Date: 20130604
  Receipt Date: 20130604
  Transmission Date: 20140414
  Serious: No
  Sender: FDA-Public Use
  Company Number: US-SANOFI-AVENTIS-2012SA000615

PATIENT
  Age: 77 Year
  Sex: Female
  Weight: 91 kg

DRUGS (8)
  1. SOLOSTAR [Suspect]
     Indication: DIABETES MELLITUS
     Dates: start: 20111122, end: 20111202
  2. LANTUS [Suspect]
     Indication: DIABETES MELLITUS
     Dosage: DOSE:33 UNIT(S)
     Route: 058
  3. LANTUS [Suspect]
     Indication: DIABETES MELLITUS
     Dosage: DOSE:33 UNIT(S)
     Route: 058
  4. HUMALOG [Concomitant]
     Dosage: PEN
  5. HUMALOG [Concomitant]
     Dosage: VIAL
  6. ASPIRIN [Concomitant]
     Indication: CARDIAC DISORDER
     Dates: start: 1984
  7. TOPROL XL [Concomitant]
     Indication: CARDIAC DISORDER
     Dates: start: 2002
  8. COZAAR [Concomitant]
     Indication: CARDIAC DISORDER
     Dates: start: 2002

REACTIONS (5)
  - Visual impairment [Recovered/Resolved]
  - Product quality issue [Unknown]
  - Dizziness [Unknown]
  - Balance disorder [Recovered/Resolved]
  - Arthralgia [Recovered/Resolved]
